FAERS Safety Report 9081132 (Version 1)
Quarter: 2013Q1

REPORT INFORMATION
  Report Type: Report from Study
  Country: US (occurrence: US)
  Receive Date: 20130130
  Receipt Date: 20130130
  Transmission Date: 20140127
  Serious: No
  Sender: FDA-Public Use
  Company Number: US-ABBOTT-12P-163-0970714-00

PATIENT
  Sex: Female

DRUGS (2)
  1. HUMIRA [Suspect]
     Indication: PSORIATIC ARTHROPATHY
     Route: 058
     Dates: start: 201003, end: 201205
  2. HUMIRA [Suspect]
     Route: 058
     Dates: start: 201208

REACTIONS (2)
  - Upper respiratory tract infection [Unknown]
  - Bronchitis [Recovered/Resolved]
